FAERS Safety Report 7417321-0 (Version None)
Quarter: 2011Q2

REPORT INFORMATION
  Report Type: 
  Country: None (occurrence: None)
  Receive Date: 20110415
  Receipt Date: 20110406
  Transmission Date: 20111010
  Serious: Yes (Other)
  Sender: FDA-Public Use
  Company Number: US-BAYER-2011-012186

PATIENT
  Age: 59 Year
  Sex: Male
  Weight: 65.76 kg

DRUGS (6)
  1. NEXAVAR [Suspect]
     Indication: HEPATIC NEOPLASM MALIGNANT
     Dosage: 200 MG, QD
     Route: 048
     Dates: start: 20110129, end: 20110202
  2. METFORMIN [Concomitant]
     Indication: DIABETES MELLITUS
     Dosage: UNK UNK, BID
  3. BENADRYL [Suspect]
  4. OXYCODONE [Concomitant]
  5. NEXAVAR [Suspect]
     Dosage: 200 MG, BID
     Route: 048
     Dates: start: 20110202, end: 20110405
  6. ANTIHYPERTENSIVES [Concomitant]

REACTIONS (18)
  - PAIN IN EXTREMITY [None]
  - GAIT DISTURBANCE [None]
  - MUSCLE SPASMS [None]
  - ARTHRITIS [None]
  - FACIAL PAIN [None]
  - WOUND INFECTION [None]
  - HEART RATE INCREASED [None]
  - CHEST PAIN [None]
  - NECK PAIN [None]
  - FATIGUE [None]
  - MYALGIA [None]
  - BLOOD PRESSURE INCREASED [None]
  - BACK PAIN [None]
  - FLATULENCE [None]
  - PAIN OF SKIN [None]
  - CHEST DISCOMFORT [None]
  - BLOOD GLUCOSE DECREASED [None]
  - ARTHRALGIA [None]
